FAERS Safety Report 7081856-3 (Version None)
Quarter: 2010Q4

REPORT INFORMATION
  Report Type: 
  Country: None (occurrence: None)
  Receive Date: 20101103
  Receipt Date: 20101020
  Transmission Date: 20110411
  Serious: Yes (Hospitalization, Other)
  Sender: FDA-Public Use
  Company Number: ES-AMGEN-US402681

PATIENT

DRUGS (9)
  1. ENBREL [Suspect]
     Indication: PSORIATIC ARTHROPATHY
     Dosage: 50 MG, QWK
     Route: 058
     Dates: start: 20051001, end: 20100201
  2. SIMVASTATIN [Concomitant]
     Dosage: 10 MG, QD
  3. METFORMIN [Concomitant]
     Dosage: 850 MG, TID
  4. MIXTARD HUMAN 70/30 [Concomitant]
     Dosage: UNK UNK, UNK
  5. MIXTARD HUMAN 70/30 [Concomitant]
     Dosage: UNKNOWN
  6. OMEPRAZOLE [Concomitant]
     Dosage: 20 MG, QD
  7. ARTRINOVO [Concomitant]
     Dosage: 25 MG, QD
  8. IDEOS [Concomitant]
  9. DAFLON [Concomitant]

REACTIONS (1)
  - PANCREATIC CARCINOMA [None]
